FAERS Safety Report 23205723 (Version 3)
Quarter: 2024Q1

REPORT INFORMATION
  Report Type: Spontaneous
  Country: US (occurrence: US)
  Receive Date: 20231120
  Receipt Date: 20240109
  Transmission Date: 20240410
  Serious: No
  Sender: FDA-Public Use
  Company Number: US-PFIZER INC-2021258513

PATIENT
  Age: 81 Year
  Sex: Female
  Weight: 76.66 kg

DRUGS (6)
  1. IBRANCE [Suspect]
     Active Substance: PALBOCICLIB
     Indication: Metastases to liver
     Dosage: 100 MG CYCLIC Q 2 DAYS FOR 21 DAYS
     Route: 048
     Dates: start: 20170109, end: 20200415
  2. IBRANCE [Suspect]
     Active Substance: PALBOCICLIB
     Indication: Lung neoplasm malignant
     Dosage: 125 MG DAILY FOR 21 DAYS
     Route: 048
     Dates: start: 20170202, end: 20180717
  3. IBRANCE [Suspect]
     Active Substance: PALBOCICLIB
     Indication: Bone neoplasm
     Dosage: 100 MG DAILY FOR 21 DAYS
     Route: 048
     Dates: start: 20180717, end: 20190409
  4. IBRANCE [Suspect]
     Active Substance: PALBOCICLIB
     Indication: Breast cancer
     Dosage: 100 MG CYCLIC Q 2 DAYS FOR 21 DAYS
     Route: 048
     Dates: start: 20190411
  5. IBRANCE [Suspect]
     Active Substance: PALBOCICLIB
     Dosage: 100 MG CYCLIC Q 2 DAYS FOR 21 DAYS
     Route: 048
     Dates: start: 20200610, end: 20220329
  6. HYDRALAZINE [Concomitant]
     Active Substance: HYDRALAZINE HYDROCHLORIDE
     Indication: Hypertension
     Dosage: UNK

REACTIONS (3)
  - Hypoacusis [Unknown]
  - Hepatic pain [Unknown]
  - Off label use [Unknown]
